FAERS Safety Report 24760054 (Version 1)
Quarter: 2024Q4

REPORT INFORMATION
  Report Type: Other
  Country: SE (occurrence: SE)
  Receive Date: 20241220
  Receipt Date: 20241220
  Transmission Date: 20250114
  Serious: Yes (Life-Threatening, Disabling)
  Sender: B BRAUN
  Company Number: SE-B.Braun Medical Inc.-2167499

PATIENT
  Age: 21 Year
  Sex: Female

DRUGS (5)
  1. HEPARIN SODIUM IN DEXTROSE [Suspect]
     Active Substance: HEPARIN SODIUM
     Indication: Basilar artery thrombosis
  2. UNSPECIFIED INGREDIENT [Suspect]
     Active Substance: UNSPECIFIED INGREDIENT
  3. NITROUS OXIDE [Concomitant]
     Active Substance: NITROUS OXIDE
  4. Combined oral contraceptives [Concomitant]
  5. CYANOCOBALAMIN [Suspect]
     Active Substance: CYANOCOBALAMIN

REACTIONS (1)
  - Drug ineffective [Unknown]
